FAERS Safety Report 24586019 (Version 1)
Quarter: 2024Q4

REPORT INFORMATION
  Report Type: Report from Study
  Country: DE (occurrence: DE)
  Receive Date: 20241106
  Receipt Date: 20241106
  Transmission Date: 20250114
  Serious: No
  Sender: TRAVERE THERAPEUTICS
  Company Number: DE-Vifor (International) Inc.-VIT-2024-08476

PATIENT
  Age: 47 Year
  Sex: Male
  Weight: 92 kg

DRUGS (7)
  1. FILSPARI [Suspect]
     Active Substance: SPARSENTAN
     Indication: IgA nephropathy
     Dosage: DAILY
     Route: 048
     Dates: start: 20240125, end: 20240208
  2. FILSPARI [Suspect]
     Active Substance: SPARSENTAN
     Dosage: DAILY
     Route: 048
     Dates: start: 20240209
  3. MYCOPHENOLATE MOFETIL [Concomitant]
     Active Substance: MYCOPHENOLATE MOFETIL
     Indication: IgA nephropathy
     Route: 050
  4. PREDNISOLONE [Concomitant]
     Active Substance: PREDNISOLONE
     Indication: IgA nephropathy
     Route: 050
  5. TORSEMIDE [Concomitant]
     Active Substance: TORSEMIDE
     Indication: IgA nephropathy
     Route: 050
     Dates: start: 20240410
  6. JARDIANCE [Concomitant]
     Active Substance: EMPAGLIFLOZIN
     Indication: IgA nephropathy
     Route: 050
  7. ATORVASTATIN [Concomitant]
     Active Substance: ATORVASTATIN
     Indication: IgA nephropathy
     Route: 050

REACTIONS (1)
  - Oedema [Recovered/Resolved]

NARRATIVE: CASE EVENT DATE: 20240410
